FAERS Safety Report 22588617 (Version 1)
Quarter: 2023Q2

REPORT INFORMATION
  Report Type: Spontaneous
  Country: CN (occurrence: CN)
  Receive Date: 20230612
  Receipt Date: 20230612
  Transmission Date: 20230722
  Serious: Yes (Death)
  Sender: FDA-Public Use
  Company Number: CN-ZAILAB-ZAI202300496

PATIENT
  Age: 57 Year
  Sex: Female
  Weight: 78 kg

DRUGS (4)
  1. QINLOCK [Suspect]
     Active Substance: RIPRETINIB
     Indication: Gastrointestinal stromal tumour
     Dosage: 100 MILLIGRAM, QD
     Dates: start: 20230418
  2. QINLOCK [Suspect]
     Active Substance: RIPRETINIB
     Dosage: 150 MILLIGRAM, QD
     Dates: start: 20230518, end: 20230526
  3. METOPROLOL SUCCINATE [Concomitant]
     Active Substance: METOPROLOL SUCCINATE
     Indication: Hypertension
     Dosage: 47.5 MG, QD
     Dates: start: 20100601, end: 20230526
  4. LEVAMLODIPINE BESYLATE [Concomitant]
     Active Substance: LEVAMLODIPINE BESYLATE
     Indication: Hypertension
     Dosage: 2.5 MG, QD
     Dates: start: 20180601, end: 20230424

REACTIONS (7)
  - Neoplasm progression [Fatal]
  - Blood pressure inadequately controlled [Recovered/Resolved]
  - Muscle twitching [Unknown]
  - Rash erythematous [Recovered/Resolved]
  - Muscle spasms [Unknown]
  - Pruritus [Recovered/Resolved]
  - Underdose [Unknown]

NARRATIVE: CASE EVENT DATE: 20230429
